FAERS Safety Report 21059193 (Version 2)
Quarter: 2022Q3

REPORT INFORMATION
  Report Type: Report from Study
  Country: US (occurrence: US)
  Receive Date: 20220708
  Receipt Date: 20220725
  Transmission Date: 20221027
  Serious: Yes (Hospitalization)
  Sender: FDA-Public Use
  Company Number: US-JNJFOC-20220706165

PATIENT
  Age: 35 Year
  Sex: Female
  Weight: 83 kg

DRUGS (6)
  1. DARATUMUMAB [Suspect]
     Active Substance: DARATUMUMAB
     Indication: Non-Hodgkin^s lymphoma
     Dosage: LAST DOSE ON 31-MAY-2022
     Route: 065
     Dates: start: 20220304
  2. ETOPOSIDE [Suspect]
     Active Substance: ETOPOSIDE
     Indication: Non-Hodgkin^s lymphoma
     Dosage: LAST DOSE ON 31-MAY-2022
     Route: 065
     Dates: start: 20220304
  3. DOXORUBICIN [Suspect]
     Active Substance: DOXORUBICIN
     Indication: Non-Hodgkin^s lymphoma
     Dosage: LAST DOSE ON 04-JUN-2022
     Route: 065
     Dates: start: 20220304
  4. PREDNISONE [Suspect]
     Active Substance: PREDNISONE
     Indication: Non-Hodgkin^s lymphoma
     Dosage: LAST DOSE ON 04-JUN-2022
     Route: 065
     Dates: start: 20220304
  5. VINCRISTINE SULFATE [Suspect]
     Active Substance: VINCRISTINE SULFATE
     Indication: Non-Hodgkin^s lymphoma
     Dosage: LAST DOSE ON 04-JUN-2022
     Route: 065
     Dates: start: 20220531
  6. CYCLOPHOSPHAMIDE [Suspect]
     Active Substance: CYCLOPHOSPHAMIDE
     Indication: Non-Hodgkin^s lymphoma
     Dosage: LAST DOSE ON 04-JUN-2022
     Route: 065
     Dates: start: 20220304

REACTIONS (2)
  - Febrile neutropenia [Recovered/Resolved]
  - COVID-19 [Recovered/Resolved]

NARRATIVE: CASE EVENT DATE: 20220608
